FAERS Safety Report 21000328 (Version 1)
Quarter: 2022Q3

REPORT INFORMATION
  Report Type: Spontaneous
  Country: US (occurrence: US)
  Receive Date: 20220623
  Receipt Date: 20220623
  Transmission Date: 20221026
  Serious: Yes (Hospitalization, Other)
  Sender: FDA-Public Use
  Company Number: US-NOVARTISPH-NVSC2022US140179

PATIENT
  Sex: Female
  Weight: 82 kg

DRUGS (51)
  1. ATORVASTATIN CALCIUM [Suspect]
     Active Substance: ATORVASTATIN CALCIUM
     Indication: Hyperlipidaemia
     Dosage: 20 MG, QD (AT BEDTIME)
     Route: 048
     Dates: start: 20220526
  2. ASPIRIN [Concomitant]
     Active Substance: ASPIRIN
     Indication: Cardiac failure congestive
     Dosage: 81 MG, QD
     Route: 065
     Dates: start: 20220604
  3. BACLOFEN [Concomitant]
     Active Substance: BACLOFEN
     Indication: Muscle spasms
     Dosage: 05 DOSAGE FORM, Q8H
     Route: 065
     Dates: start: 20220525
  4. BACLOFEN [Concomitant]
     Active Substance: BACLOFEN
     Dosage: 05 MG, TID
     Route: 048
  5. COLACE [Concomitant]
     Active Substance: DOCUSATE SODIUM
     Indication: Constipation
     Dosage: 100 MG, BID
     Route: 048
     Dates: start: 20220603
  6. DIPHENHYDRAMINE HYDROCHLORIDE [Concomitant]
     Active Substance: DIPHENHYDRAMINE HYDROCHLORIDE
     Indication: Pruritus
     Dosage: 25 MG, QD
     Route: 065
     Dates: start: 20220526
  7. DIVALPROEX SODIUM [Concomitant]
     Active Substance: DIVALPROEX SODIUM
     Indication: Bipolar disorder
     Dosage: 500 MG, QD (AT BED TIME)
     Route: 048
     Dates: start: 20220526
  8. DIVALPROEX SODIUM [Concomitant]
     Active Substance: DIVALPROEX SODIUM
     Dosage: 250 UNK
     Route: 048
  9. FUROSEMIDE [Concomitant]
     Active Substance: FUROSEMIDE
     Indication: Hypertensive heart disease
     Dosage: 40 MG, QD
     Route: 065
     Dates: start: 20220527
  10. LEVOTHYROXINE SODIUM [Concomitant]
     Active Substance: LEVOTHYROXINE SODIUM
     Indication: Hypothyroidism
     Dosage: 225 UG, QD
     Route: 065
     Dates: start: 20220527
  11. LEVOTHYROXINE SODIUM [Concomitant]
     Active Substance: LEVOTHYROXINE SODIUM
     Dosage: 200 UNK
     Route: 048
  12. MAGNESIUM OXIDE [Concomitant]
     Active Substance: MAGNESIUM OXIDE
     Indication: Muscle spasms
     Dosage: 400 MG, QD (AT BED TIME)
     Route: 048
     Dates: start: 20220604
  13. MELOXICAM [Concomitant]
     Active Substance: MELOXICAM
     Indication: Arthralgia
     Dosage: 1 DOSAGE FORM, QD
     Route: 065
     Dates: start: 20220526
  14. METOPROLOL TARTRATE [Concomitant]
     Active Substance: METOPROLOL TARTRATE
     Indication: Hypertensive heart disease
     Dosage: 1 DOSAGE FORM, BID
     Route: 065
     Dates: start: 20220526
  15. METOPROLOL TARTRATE [Concomitant]
     Active Substance: METOPROLOL TARTRATE
     Dosage: 6.2 MG
     Route: 048
  16. NYSTATIN [Concomitant]
     Active Substance: NYSTATIN
     Indication: Skin irritation
     Dosage: 100000 UNIT/GM, BID
     Route: 061
     Dates: start: 20220525
  17. ONDANSETRON HCL [Concomitant]
     Active Substance: ONDANSETRON HYDROCHLORIDE
     Indication: Nausea
     Dosage: 1 DOSAGE FORM, Q4H
     Route: 065
     Dates: start: 20220609
  18. ONDANSETRON HCL [Concomitant]
     Active Substance: ONDANSETRON HYDROCHLORIDE
     Indication: Vomiting
  19. POTASSIUM [Concomitant]
     Active Substance: POTASSIUM
     Indication: Hypokalaemia
     Dosage: 20 MEQ, QD
     Route: 065
     Dates: start: 20220526
  20. REFRESH PLUS [Concomitant]
     Active Substance: CARBOXYMETHYLCELLULOSE SODIUM
     Indication: Dry eye
     Dosage: 1 DRP IIN BOTH EYES, Q2H
     Route: 065
     Dates: start: 20220601
  21. SENNA PLUS [Concomitant]
     Active Substance: DOCUSATE SODIUM\SENNOSIDES\SENNOSIDES A AND B
     Indication: Constipation
     Dosage: 1 DOSAGE FORM, Q12H
     Route: 065
     Dates: start: 20220609
  22. SENNA [Concomitant]
     Active Substance: SENNA LEAF\SENNOSIDES\SENNOSIDES A AND B
     Indication: Constipation
     Dosage: 8.6 MG, BID
     Route: 048
     Dates: start: 20220603
  23. BIOTIN [Concomitant]
     Active Substance: BIOTIN
     Indication: Product used for unknown indication
     Dosage: 5000 UG, BID
     Route: 065
  24. ASPIRIN [Concomitant]
     Active Substance: ASPIRIN
     Indication: Product used for unknown indication
     Route: 065
  25. CALCIUM OYSTER SHELL [Concomitant]
     Indication: Product used for unknown indication
     Dosage: 600 MG
     Route: 048
  26. COENZYME Q10 [Concomitant]
     Active Substance: DIETARY SUPPLEMENT\UBIDECARENONE
     Indication: Product used for unknown indication
     Dosage: 100 MG, QD
     Route: 048
  27. HYDROCHLOROTHIAZIDE [Concomitant]
     Active Substance: HYDROCHLOROTHIAZIDE
     Indication: Product used for unknown indication
     Dosage: 25 MG, QD
     Route: 048
  28. LISINOPRIL [Concomitant]
     Active Substance: LISINOPRIL
     Indication: Product used for unknown indication
     Dosage: 40 MG, QD
     Route: 048
  29. LISINOPRIL [Concomitant]
     Active Substance: LISINOPRIL
     Dosage: 10 UNK
     Route: 048
  30. MYRBETRIQ [Concomitant]
     Active Substance: MIRABEGRON
     Indication: Product used for unknown indication
     Dosage: 50 MG, QD
     Route: 048
  31. NASONEX [Concomitant]
     Active Substance: MOMETASONE FUROATE
     Indication: Product used for unknown indication
     Dosage: UNK UNK, PRN
     Route: 045
  32. OMEPRAZOLE [Concomitant]
     Active Substance: OMEPRAZOLE
     Indication: Product used for unknown indication
     Dosage: 20 MG, QD
     Route: 048
  33. ONE-A-DAY NOS [Concomitant]
     Active Substance: MINERALS\VITAMINS
     Indication: Product used for unknown indication
     Dosage: 1 DOSAGE FORM, QD
     Route: 048
  34. OXYBUTYNIN CHLORIDE [Concomitant]
     Active Substance: OXYBUTYNIN CHLORIDE
     Indication: Product used for unknown indication
     Dosage: 15 MG, QD
     Route: 048
  35. PROVENTIL HFA [Concomitant]
     Active Substance: ALBUTEROL SULFATE
     Indication: Product used for unknown indication
     Dosage: UNK, PER MDI
     Route: 065
  36. ROSUVASTATIN CALCIUM [Concomitant]
     Active Substance: ROSUVASTATIN CALCIUM
     Indication: Product used for unknown indication
     Dosage: 20 MG, QD
     Route: 048
  37. VITAMIN E [Concomitant]
     Active Substance: .ALPHA.-TOCOPHEROL
     Indication: Product used for unknown indication
     Dosage: UNK UNK, BID
     Route: 065
  38. BENADRYL [Concomitant]
     Active Substance: DIPHENHYDRAMINE HYDROCHLORIDE
     Indication: Product used for unknown indication
     Dosage: 25 MG, QD (DAILY AT BEDTIME)
     Route: 048
  39. CELEBREX [Concomitant]
     Active Substance: CELECOXIB
     Indication: Product used for unknown indication
     Dosage: 100 MG, BID
     Route: 048
  40. LASIX [Concomitant]
     Active Substance: FUROSEMIDE
     Indication: Product used for unknown indication
     Dosage: 40 MG, QD
     Route: 048
  41. MELATONIN [Concomitant]
     Active Substance: MELATONIN
     Indication: Product used for unknown indication
     Dosage: 10 MG, QD (AT BED TIME)
     Route: 048
  42. POTASSIUM CHLORIDE [Concomitant]
     Active Substance: POTASSIUM CHLORIDE
     Indication: Product used for unknown indication
     Dosage: 20 MEQ, QD
     Route: 048
  43. REQUIP [Concomitant]
     Active Substance: ROPINIROLE HYDROCHLORIDE
     Indication: Product used for unknown indication
     Dosage: 2 MG, TID
     Route: 048
  44. RISPERIDONE [Concomitant]
     Active Substance: RISPERIDONE
     Indication: Product used for unknown indication
     Route: 065
  45. SPIRONOLACTONE [Concomitant]
     Active Substance: SPIRONOLACTONE
     Indication: Product used for unknown indication
     Dosage: 50 MG, QD
     Route: 048
  46. TRAMADOL HCL [Concomitant]
     Active Substance: TRAMADOL HYDROCHLORIDE
     Indication: Product used for unknown indication
     Dosage: 50 MG, QD (AT BEDTIME)
     Route: 048
  47. VITAMIN C [Concomitant]
     Active Substance: ASCORBIC ACID
     Indication: Product used for unknown indication
     Dosage: 500 MG, BID
     Route: 048
  48. VITAMIN D3 [Concomitant]
     Active Substance: CHOLECALCIFEROL
     Indication: Product used for unknown indication
     Dosage: 125 UG, QD
     Route: 048
  49. ZINC [Concomitant]
     Active Substance: ZINC
     Indication: Product used for unknown indication
     Dosage: 50 MG, QD
     Route: 048
  50. SODIUM CHLORIDE [Concomitant]
     Active Substance: SODIUM CHLORIDE
     Indication: Product used for unknown indication
     Dosage: 1000 ML-R FLUID AT 150 ML/HR
     Route: 042
     Dates: start: 20220615
  51. DULOXETINE HYDROCHLORIDE [Concomitant]
     Active Substance: DULOXETINE HYDROCHLORIDE
     Indication: Depression
     Dosage: 60 MG, QD
     Route: 065

REACTIONS (13)
  - Post procedural haemorrhage [Unknown]
  - Postoperative wound complication [Recovering/Resolving]
  - Gait disturbance [Unknown]
  - Fatigue [Unknown]
  - Bloody discharge [Unknown]
  - Pain [Unknown]
  - Abdominal tenderness [Unknown]
  - Lymphadenopathy [Unknown]
  - Anxiety [Unknown]
  - Flushing [Unknown]
  - Skin warm [Unknown]
  - Cold sweat [Unknown]
  - Hyperhidrosis [Unknown]
